FAERS Safety Report 9241408 (Version 1)
Quarter: 2013Q2

REPORT INFORMATION
  Report Type: Spontaneous
  Country: US (occurrence: US)
  Receive Date: 20130418
  Receipt Date: 20130418
  Transmission Date: 20140414
  Serious: No
  Sender: FDA-Public Use
  Company Number: US-SANOFI-AVENTIS-2012SA092108

PATIENT
  Age: 68 Year
  Sex: Female

DRUGS (3)
  1. ENOXAPARIN SODIUM [Suspect]
     Indication: PULMONARY EMBOLISM
     Route: 065
     Dates: start: 20121210
  2. COUMADIN [Suspect]
     Indication: PULMONARY EMBOLISM
     Route: 048
     Dates: start: 2012, end: 201212
  3. COUMADIN [Suspect]
     Indication: PULMONARY EMBOLISM
     Dosage: DOSE:10 UNIT(S)
     Route: 048
     Dates: start: 20121210, end: 20121211

REACTIONS (2)
  - Feeling abnormal [Unknown]
  - Therapeutic response decreased [Unknown]
